FAERS Safety Report 23696070 (Version 3)
Quarter: 2024Q4

REPORT INFORMATION
  Report Type: Report from Study
  Country: JP (occurrence: JP)
  Receive Date: 20240402
  Receipt Date: 20241008
  Transmission Date: 20250115
  Serious: Yes (Other)
  Sender: NOVARTIS
  Company Number: JP-002147023-NVSJ2022JP093520

PATIENT
  Age: 3 Year
  Sex: Female
  Weight: 17.6 kg

DRUGS (3)
  1. KYMRIAH [Suspect]
     Active Substance: TISAGENLECLEUCEL
     Indication: Acute lymphocytic leukaemia
     Dosage: UNK, FULL DOSE( (TOTAL NUMBER OF CELLS ADMINISTERED: 0.7 (10 ^ 8)))
     Route: 041
     Dates: start: 20210826, end: 20210826
  2. FLUDARABINE PHOSPHATE [Concomitant]
     Active Substance: FLUDARABINE PHOSPHATE
     Indication: Chemotherapy
     Dosage: 120 MG/M2
     Route: 065
     Dates: start: 20210820
  3. CYCLOPHOSPHAMIDE [Concomitant]
     Active Substance: CYCLOPHOSPHAMIDE
     Indication: Chemotherapy
     Dosage: 120 MG/M2
     Route: 065
     Dates: start: 20210820

REACTIONS (9)
  - Cytokine release syndrome [Recovered/Resolved]
  - Pyrexia [Unknown]
  - Hypogammaglobulinaemia [Not Recovered/Not Resolved]
  - Neutrophil count decreased [Unknown]
  - Acute lymphocytic leukaemia recurrent [Unknown]
  - White blood cell count decreased [Unknown]
  - Lymphocyte count decreased [Unknown]
  - Acute graft versus host disease [Unknown]
  - Alpha haemolytic streptococcal infection [Unknown]

NARRATIVE: CASE EVENT DATE: 20210827
